FAERS Safety Report 23849245 (Version 1)
Quarter: 2024Q2

REPORT INFORMATION
  Report Type: Spontaneous
  Country: BR (occurrence: BR)
  Receive Date: 20240513
  Receipt Date: 20240513
  Transmission Date: 20240716
  Serious: Yes (Other)
  Sender: FDA-Public Use
  Company Number: BR-002147023-NVSC2024BR100241

PATIENT
  Sex: Female

DRUGS (1)
  1. BETOPTIC S [Suspect]
     Active Substance: BETAXOLOL HYDROCHLORIDE
     Indication: Glaucoma
     Dosage: 2.8 MILLIGRAM PER MILLILITRE (5ML)
     Route: 065

REACTIONS (2)
  - Cataract [Recovered/Resolved]
  - Product supply issue [Unknown]
